FAERS Safety Report 9302709 (Version 1)
Quarter: 2013Q2

REPORT INFORMATION
  Report Type: Report from Study
  Country: NL (occurrence: NL)
  Receive Date: 20130522
  Receipt Date: 20130522
  Transmission Date: 20140414
  Serious: Yes (Hospitalization)
  Sender: FDA-Public Use
  Company Number: PHHY2013NL049923

PATIENT
  Age: 72 Year
  Sex: Male

DRUGS (14)
  1. ZOMETA [Suspect]
     Indication: METASTASES TO BONE
     Dosage: 4 MG/100 ML, EVERY 28 DAYS
     Route: 042
  2. ZOMETA [Suspect]
     Dosage: 4 MG/100 ML, EVERY 28 DAYS
     Route: 042
     Dates: start: 20130204
  3. ZOMETA [Suspect]
     Dosage: 4 MG/100 ML, EVERY 28 DAYS
     Route: 042
     Dates: start: 20130403
  4. FRAGMIN [Concomitant]
     Dosage: UNK UKN, UNK
  5. PARACETAMOL [Concomitant]
     Dosage: UNK UKN, UNK
  6. FENTANYL [Concomitant]
     Dosage: UNK UKN, UNK
  7. MOVICOLON [Concomitant]
     Dosage: UNK UKN, UNK
  8. PANTOPRAZOLE [Concomitant]
     Dosage: UNK UKN, UNK
  9. BISOPROLOL [Concomitant]
     Dosage: UNK UKN, UNK
  10. AMLODIPINE [Concomitant]
     Dosage: UNK UKN, UNK
  11. ENALAPRIL [Concomitant]
     Dosage: UNK UKN, UNK
  12. CHLORTHALIDONE [Concomitant]
     Dosage: UNK UKN, UNK
  13. GLIMEPIRIDE [Concomitant]
     Dosage: UNK UKN, UNK
  14. TAMSULOSIN [Concomitant]
     Dosage: UNK UKN, UNK

REACTIONS (3)
  - Terminal state [Unknown]
  - General physical health deterioration [Unknown]
  - Pain [Not Recovered/Not Resolved]
